FAERS Safety Report 23244868 (Version 1)
Quarter: 2023Q4

REPORT INFORMATION
  Report Type: Spontaneous
  Country: None (occurrence: US)
  Receive Date: 20231130
  Receipt Date: 20231130
  Transmission Date: 20240110
  Serious: No
  Sender: FDA-Public Use
  Company Number: US-STI Pharma LLC-2148819

PATIENT
  Age: 75 Year
  Sex: Female

DRUGS (5)
  1. ETHAMBUTOL HYDROCHLORIDE [Suspect]
     Active Substance: ETHAMBUTOL HYDROCHLORIDE
  2. AZITHROMYCIN [Concomitant]
     Active Substance: AZITHROMYCIN
     Dates: start: 202211
  3. RIFAMPIN [Concomitant]
     Active Substance: RIFAMPIN
  4. RIFABUTIN [Concomitant]
     Active Substance: RIFABUTIN
  5. ARIKAYCE [Concomitant]
     Active Substance: AMIKACIN

REACTIONS (1)
  - Drug intolerance [Unknown]
